FAERS Safety Report 15552435 (Version 1)
Quarter: 2018Q4

REPORT INFORMATION
  Report Type: Spontaneous
  Country: US (occurrence: US)
  Receive Date: 20181025
  Receipt Date: 20181025
  Transmission Date: 20190205
  Serious: No
  Sender: FDA-Public Use
  Company Number: US-TAKEDA-2018MPI013302

PATIENT
  Sex: Female
  Weight: 72 kg

DRUGS (1)
  1. VELCADE [Suspect]
     Active Substance: BORTEZOMIB
     Indication: PLASMA CELL MYELOMA
     Dosage: 2.7 MG, 1/WEEK
     Route: 058
     Dates: start: 20101018

REACTIONS (3)
  - Abdominal pain [Unknown]
  - Pelvic pain [Unknown]
  - Haemorrhage [Unknown]
